FAERS Safety Report 17300607 (Version 1)
Quarter: 2020Q1

REPORT INFORMATION
  Report Type: Spontaneous
  Country: US (occurrence: US)
  Receive Date: 20200122
  Receipt Date: 20200122
  Transmission Date: 20200409
  Serious: No
  Sender: FDA-Public Use
  Company Number: US-ALLERGAN-1944817US

PATIENT
  Age: 45 Year
  Sex: Female

DRUGS (2)
  1. RESTASIS [Suspect]
     Active Substance: CYCLOSPORINE
     Dosage: 2 GTT, BID
     Route: 047
  2. RESTASIS [Suspect]
     Active Substance: CYCLOSPORINE
     Indication: DRY EYE
     Dosage: 2GTTS OU IN THE MORNING, 1GTT OU AT NIGHT
     Route: 047

REACTIONS (4)
  - Inability to afford medication [Unknown]
  - Eye haemorrhage [Unknown]
  - Product administration interrupted [Unknown]
  - Intentional product misuse [Unknown]
